FAERS Safety Report 7086072-7 (Version None)
Quarter: 2010Q4

REPORT INFORMATION
  Report Type: 
  Country: None (occurrence: None)
  Receive Date: 20101105
  Receipt Date: 20101031
  Transmission Date: 20110411
  Serious: Yes (Death)
  Sender: FDA-Public Use
  Company Number: A0890662A

PATIENT
  Weight: 90.9 kg

DRUGS (1)
  1. LAMICTAL [Suspect]
     Dosage: 25MG SEE DOSAGE TEXT
     Route: 065

REACTIONS (2)
  - DEATH [None]
  - OVERDOSE [None]
